FAERS Safety Report 17716518 (Version 1)
Quarter: 2020Q2

REPORT INFORMATION
  Report Type: Spontaneous
  Country: US (occurrence: US)
  Receive Date: 20200428
  Receipt Date: 20200428
  Transmission Date: 20200714
  Serious: Yes (Death, Other)
  Sender: FDA-Public Use
  Company Number: US-SA-2020SA109027

PATIENT
  Sex: Female

DRUGS (6)
  1. ZANTAC 150 (RANITIDINE HYDROCHLORIDE) [Suspect]
     Active Substance: RANITIDINE HYDROCHLORIDE
     Indication: ABDOMINAL PAIN
     Dosage: UNK, TID
     Dates: start: 1994, end: 20000917
  2. CISAPRIDE [Suspect]
     Active Substance: CISAPRIDE
     Dosage: UNK UNK, BID
     Dates: start: 1994, end: 20000917
  3. CISAPRIDE [Suspect]
     Active Substance: CISAPRIDE
     Dosage: UNK UNK, HS
     Dates: start: 1994, end: 20000917
  4. ZANTAC 150 (RANITIDINE HYDROCHLORIDE) [Suspect]
     Active Substance: RANITIDINE HYDROCHLORIDE
     Indication: GASTROINTESTINAL DISORDER
  5. RANITIDINE HYDROCHLORIDE. [Suspect]
     Active Substance: RANITIDINE HYDROCHLORIDE
     Indication: ABDOMINAL PAIN
     Dosage: TWICE OR THRICE DAILY
     Dates: start: 1994, end: 20000917
  6. RANITIDINE HYDROCHLORIDE. [Suspect]
     Active Substance: RANITIDINE HYDROCHLORIDE
     Indication: GASTROINTESTINAL DISORDER

REACTIONS (7)
  - Pruritus [Unknown]
  - Renal cell carcinoma [Unknown]
  - Back pain [Unknown]
  - Blood urine present [Unknown]
  - Renal cyst [Unknown]
  - Death [Fatal]
  - Abdominal pain [Unknown]

NARRATIVE: CASE EVENT DATE: 20000917
